FAERS Safety Report 7992443-4 (Version None)
Quarter: 2011Q4

REPORT INFORMATION
  Report Type: 
  Country: None (occurrence: None)
  Receive Date: 20111219
  Receipt Date: 20111207
  Transmission Date: 20120403
  Serious: Yes (Hospitalization)
  Sender: FDA-Public Use
  Company Number: PHFR2011GB01471

PATIENT
  Sex: Female

DRUGS (4)
  1. CLOZARIL [Suspect]
     Dosage: 200 MG,
     Route: 048
  2. CLOZARIL [Suspect]
     Dosage: 150 MG, BID
     Route: 048
     Dates: start: 20110301
  3. CLOZARIL [Suspect]
     Indication: SCHIZOPHRENIA, PARANOID TYPE
     Dosage: 150 MG MANE, 250 MG NOCTE
     Route: 048
     Dates: start: 20040206
  4. CLOZARIL [Suspect]
     Dosage: 150 MG MANE, 250 MG NOCTE
     Route: 048

REACTIONS (9)
  - DIARRHOEA [None]
  - DEHYDRATION [None]
  - RENAL DISORDER [None]
  - PLATELET COUNT INCREASED [None]
  - SEDATION [None]
  - MENTAL IMPAIRMENT [None]
  - MYOCARDIAL INFARCTION [None]
  - GENERAL PHYSICAL HEALTH DETERIORATION [None]
  - HYPERSOMNIA [None]
